FAERS Safety Report 6314250-0 (Version None)
Quarter: 2009Q3

REPORT INFORMATION
  Report Type: 
  Country: None (occurrence: None)
  Receive Date: 20090817
  Receipt Date: 20090810
  Transmission Date: 20100115
  Serious: Yes (Other)
  Sender: FDA-Public Use
  Company Number: 1419181-2008-0014

PATIENT
  Sex: Female
  Weight: 60.782 kg

DRUGS (5)
  1. CHLORHEXIDINE GLUCONATE [Suspect]
     Indication: INFECTION PROPHYLAXIS
     Dosage: 3000MG DAILY TOPICAL
     Route: 061
     Dates: start: 20080607, end: 20080806
  2. ENDOTRACHAEL TUBE [Concomitant]
  3. TRACHEOSTOMY [Concomitant]
  4. GASTROSTOMY [Concomitant]
  5. PICC PLACEMENT [Concomitant]

REACTIONS (11)
  - ABDOMINAL ABSCESS [None]
  - ASPIRATION [None]
  - BLOOD CULTURE POSITIVE [None]
  - BLOOD DISORDER [None]
  - BURKHOLDERIA CEPACIA COMPLEX INFECTION [None]
  - CULTURE POSITIVE [None]
  - INFECTION [None]
  - KLEBSIELLA INFECTION [None]
  - PRODUCT QUALITY ISSUE [None]
  - RESPIRATORY DISTRESS [None]
  - TRANSMISSION OF AN INFECTIOUS AGENT VIA A MEDICINAL PRODUCT [None]
